FAERS Safety Report 12817729 (Version 1)
Quarter: 2016Q4

REPORT INFORMATION
  Report Type: Report from Study
  Country: JP (occurrence: JP)
  Receive Date: 20161006
  Receipt Date: 20161006
  Transmission Date: 20170207
  Serious: Yes (Hospitalization, Other)
  Sender: FDA-Public Use
  Company Number: JP-AMGEN-JPNCT2016137230

PATIENT
  Age: 78 Year
  Sex: Female
  Weight: 43 kg

DRUGS (38)
  1. OZEX [Suspect]
     Active Substance: TOSUFLOXACIN TOSYLATE
     Indication: PNEUMONIA
     Dosage: 450 MG, UNK
     Route: 048
     Dates: start: 20150923, end: 20151123
  2. FLAGYL [Suspect]
     Active Substance: METRONIDAZOLE\METRONIDAZOLE HYDROCHLORIDE
     Indication: CLOSTRIDIUM DIFFICILE COLITIS
     Dosage: 250 MG, UNK
     Route: 048
     Dates: start: 20150701, end: 20150702
  3. FINIBAX [Suspect]
     Active Substance: DORIPENEM MONOHYDRATE
     Indication: PNEUMONIA
  4. RINDERON V [Concomitant]
     Active Substance: BETAMETHASONE VALERATE
     Dosage: 4 MG, UNK
     Route: 065
     Dates: start: 20150610, end: 20150614
  5. FINIBAX [Suspect]
     Active Substance: DORIPENEM MONOHYDRATE
     Indication: PYREXIA
     Dosage: 1.5 G, UNK
     Route: 041
     Dates: start: 20150819, end: 20150824
  6. ELCITONIN [Concomitant]
     Active Substance: ELCATONIN
     Indication: HYPERPARATHYROIDISM PRIMARY
     Dosage: 80 IU, UNK
     Route: 065
     Dates: start: 20150405, end: 20150406
  7. ZOMETA [Concomitant]
     Active Substance: ZOLEDRONIC ACID
     Indication: HYPERPARATHYROIDISM PRIMARY
     Dosage: 3 MG, UNK
     Route: 041
     Dates: start: 20150615, end: 20150615
  8. MAGNESIUM OXIDE. [Concomitant]
     Active Substance: MAGNESIUM OXIDE
     Dosage: 990 MG, UNK
     Route: 048
     Dates: start: 20150803, end: 20151122
  9. HYDREA [Concomitant]
     Active Substance: HYDROXYUREA
     Indication: MYELODYSPLASTIC SYNDROME
     Dosage: 500 MG, UNK
     Route: 048
     Dates: start: 20160218, end: 20160301
  10. MAXIPIME [Suspect]
     Active Substance: CEFEPIME HYDROCHLORIDE
     Indication: PYELONEPHRITIS
     Dosage: 3 G, UNK
     Route: 042
     Dates: start: 20150504, end: 20150513
  11. ZOSYN [Suspect]
     Active Substance: PIPERACILLIN SODIUM\TAZOBACTAM SODIUM
     Indication: PRODUCT USED FOR UNKNOWN INDICATION
     Dosage: 9 G, UNK
     Route: 065
     Dates: start: 20150608, end: 20150614
  12. CEFEPIME [Suspect]
     Active Substance: CEFEPIME HYDROCHLORIDE
     Indication: PYREXIA
     Dosage: 3 G, UNK
     Route: 065
     Dates: start: 20150630, end: 20150702
  13. CANCIDAS [Suspect]
     Active Substance: CASPOFUNGIN ACETATE
     Indication: PRODUCT USED FOR UNKNOWN INDICATION
     Dosage: UNK
     Route: 041
     Dates: start: 20160123, end: 20160212
  14. VIDAZA [Concomitant]
     Active Substance: AZACITIDINE
     Indication: MYELODYSPLASTIC SYNDROME
     Dosage: 100 MG, UNK
     Route: 065
     Dates: start: 20150803, end: 20150807
  15. GRAN [Concomitant]
     Active Substance: FILGRASTIM
     Indication: MYELODYSPLASTIC SYNDROME
     Dosage: 300 MUG, UNK
     Route: 065
     Dates: start: 20151202, end: 20151202
  16. STARASID [Concomitant]
     Active Substance: CYTARABINE OCFOSFATE
     Dosage: 100 MG, UNK
     Route: 048
     Dates: start: 20160310, end: 20160322
  17. LASIX [Concomitant]
     Active Substance: FUROSEMIDE
     Indication: CARDIAC FAILURE
     Dosage: 20 MG, UNK
     Route: 048
     Dates: end: 20150608
  18. CYLOCIDE [Concomitant]
     Active Substance: CYTARABINE
     Indication: MYELODYSPLASTIC SYNDROME
     Dosage: 13 MG, UNK
     Route: 065
     Dates: start: 20151202, end: 20151202
  19. CRAVIT [Suspect]
     Active Substance: LEVOFLOXACIN
     Indication: C-REACTIVE PROTEIN INCREASED
  20. VANCOMYCIN [Suspect]
     Active Substance: VANCOMYCIN
     Indication: PRODUCT USED FOR UNKNOWN INDICATION
     Dosage: 1 G, UNK
     Route: 041
     Dates: start: 20150614, end: 20150626
  21. LULICONAZOLE [Suspect]
     Active Substance: LULICONAZOLE
     Indication: PRODUCT USED FOR UNKNOWN INDICATION
     Dosage: UNK
     Route: 061
     Dates: start: 20150622, end: 20150701
  22. CEFDINIR. [Suspect]
     Active Substance: CEFDINIR
     Indication: PRODUCT USED FOR UNKNOWN INDICATION
     Dosage: 300 MG, UNK
     Route: 048
     Dates: start: 20150708, end: 20150714
  23. AMBROXOL HYDROCHLORIDE [Concomitant]
     Active Substance: AMBROXOL HYDROCHLORIDE
     Dosage: 45 MG, UNK
     Route: 048
     Dates: start: 20160124, end: 20160127
  24. CINACALCET HCL [Suspect]
     Active Substance: CINACALCET HYDROCHLORIDE
     Indication: HYPERPARATHYROIDISM PRIMARY
     Dosage: 25 MG, BID
     Route: 048
     Dates: start: 20150327
  25. BARAMYCIN [Suspect]
     Active Substance: BACITRACIN\NEOMYCIN SULFATE
     Indication: INFECTED DERMAL CYST
     Dosage: UNK
     Route: 061
     Dates: start: 20150629, end: 20150701
  26. GASTER [Concomitant]
     Active Substance: FAMOTIDINE
     Dosage: 20 MG, UNK
     Route: 065
     Dates: start: 20160229, end: 20160315
  27. OMEPRAZOLE. [Concomitant]
     Active Substance: OMEPRAZOLE
     Dosage: 20 MG, UNK
     Route: 065
     Dates: start: 20150610, end: 20150702
  28. CINACALCET HCL [Suspect]
     Active Substance: CINACALCET HYDROCHLORIDE
     Dosage: 25 MG, QD
     Route: 048
     Dates: start: 20150416
  29. CINACALCET HCL [Suspect]
     Active Substance: CINACALCET HYDROCHLORIDE
     Dosage: 25 MG, QD
     Route: 048
     Dates: start: 20150813
  30. CINACALCET HCL [Suspect]
     Active Substance: CINACALCET HYDROCHLORIDE
     Dosage: 25 MG, QD
     Route: 048
     Dates: start: 20160315
  31. CRAVIT [Suspect]
     Active Substance: LEVOFLOXACIN
     Indication: PYREXIA
     Dosage: 500 MG, UNK
     Route: 048
     Dates: start: 20150514, end: 20150517
  32. ROCEPHIN [Suspect]
     Active Substance: CEFTRIAXONE SODIUM
     Indication: PRODUCT USED FOR UNKNOWN INDICATION
     Dosage: 2 G, UNK
     Route: 065
     Dates: start: 20150607, end: 20150608
  33. FLUCONAZOLE. [Suspect]
     Active Substance: FLUCONAZOLE
     Indication: PRODUCT USED FOR UNKNOWN INDICATION
     Dosage: 100 MG, UNK
     Route: 048
     Dates: start: 20151207, end: 20160123
  34. ACLACINON [Suspect]
     Active Substance: ACLARUBICIN HYDROCHLORIDE
     Indication: MYELODYSPLASTIC SYNDROME
     Dosage: 18 MG, UNK
     Route: 065
     Dates: start: 20151202, end: 20151202
  35. MIYA-BM [Suspect]
     Active Substance: CLOSTRIDIUM BUTYRICUM SPORES STRAIN M-55
     Indication: DIARRHOEA
     Dosage: 3 G, UNK
     Route: 048
     Dates: start: 20151210, end: 20160112
  36. GRACEVIT [Suspect]
     Active Substance: SITAFLOXACIN
     Indication: PRODUCT USED FOR UNKNOWN INDICATION
     Dosage: 100 MG, UNK
     Route: 048
     Dates: start: 20160218, end: 20160228
  37. GRANISETRON [Concomitant]
     Active Substance: GRANISETRON
     Indication: MYELODYSPLASTIC SYNDROME
     Dosage: 1 MG, UNK
     Route: 065
     Dates: start: 20150803, end: 20150807
  38. VASOLAN [Concomitant]
     Active Substance: VERAPAMIL HYDROCHLORIDE
     Dosage: 5 MG, UNK
     Route: 042
     Dates: start: 20160308, end: 20160308

REACTIONS (17)
  - Pneumonia [Recovering/Resolving]
  - Pneumonia [Recovered/Resolved]
  - Clostridium difficile colitis [Recovering/Resolving]
  - Nausea [Recovering/Resolving]
  - Infected dermal cyst [Unknown]
  - Pyrexia [Recovered/Resolved]
  - Drug eruption [Recovering/Resolving]
  - Constipation [Recovering/Resolving]
  - Pyelonephritis [Recovered/Resolved]
  - C-reactive protein increased [Recovered/Resolved]
  - Diarrhoea [Recovered/Resolved]
  - Bronchitis [Recovered/Resolved]
  - Atrial fibrillation [Recovered/Resolved]
  - Blood alkaline phosphatase increased [Recovered/Resolved]
  - Skin candida [Unknown]
  - Hyperuricaemia [Recovering/Resolving]
  - Hypertension [Recovering/Resolving]

NARRATIVE: CASE EVENT DATE: 20150328
